FAERS Safety Report 6770479-9 (Version None)
Quarter: 2010Q2

REPORT INFORMATION
  Report Type: 
  Country: None (occurrence: None)
  Receive Date: 20100615
  Receipt Date: 20100324
  Transmission Date: 20101027
  Serious: Yes (Hospitalization, Other)
  Sender: FDA-Public Use
  Company Number: US-BAYER-200939096NA

PATIENT
  Age: 32 Year
  Sex: Female
  Weight: 91 kg

DRUGS (10)
  1. YASMIN [Suspect]
     Indication: PREMENSTRUAL SYNDROME
     Dosage: 3 MG OF DROSPIRENONE AND 0.03 MG OF ETHINYL ESTRADIOL
     Route: 048
     Dates: start: 20060425, end: 20071101
  2. PHENTERMINE [Concomitant]
  3. CHERATUSSIN [Concomitant]
  4. CLARITHROMYCIN [Concomitant]
  5. ZYRTEC [Concomitant]
  6. ADIPEX [Concomitant]
  7. AMOXICILLIN [Concomitant]
  8. DARVOCET-N 100 [Concomitant]
     Indication: MUSCLE STRAIN
  9. DILAUDID [Concomitant]
     Indication: PYELONEPHRITIS
     Route: 042
     Dates: start: 20080209
  10. LEVAQUIN [Concomitant]
     Indication: PYELONEPHRITIS
     Route: 042
     Dates: start: 20080209

REACTIONS (3)
  - DEEP VEIN THROMBOSIS [None]
  - OEDEMA PERIPHERAL [None]
  - PAIN IN EXTREMITY [None]
